FAERS Safety Report 7958141-8 (Version None)
Quarter: 2011Q4

REPORT INFORMATION
  Report Type: 
  Country: None (occurrence: None)
  Receive Date: 20111201
  Receipt Date: 20111122
  Transmission Date: 20120403
  Serious: Yes (Hospitalization)
  Sender: FDA-Public Use
  Company Number: 2011MA016908

PATIENT
  Age: 60 Year
  Sex: Female

DRUGS (7)
  1. OMEPRAZOLE [Suspect]
     Indication: GASTROOESOPHAGEAL REFLUX DISEASE
     Dosage: 20 MG; QD; PO
     Route: 048
     Dates: start: 20110817
  2. EPINEPHRINE [Concomitant]
  3. TESTOSTERONE [Concomitant]
  4. CHLORPHENIRAMINE MALEATE [Concomitant]
  5. AMOXICILLIN [Concomitant]
  6. METRONIDAZOLE [Concomitant]
  7. RAMIPRIL [Suspect]
     Indication: HYPERTENSION
     Dosage: 2.5 MG; QD; PO
     Route: 048
     Dates: start: 20110801

REACTIONS (1)
  - RHABDOMYOLYSIS [None]
